FAERS Safety Report 8998669 (Version 1)
Quarter: 2013Q1

REPORT INFORMATION
  Report Type: Spontaneous
  Country: US (occurrence: US)
  Receive Date: 20130103
  Receipt Date: 20130103
  Transmission Date: 20140127
  Serious: No
  Sender: FDA-Public Use
  Company Number: US-009507513-1212USA008542

PATIENT
  Age: 21 Year
  Sex: Female
  Weight: 63.49 kg

DRUGS (2)
  1. NUVARING [Suspect]
     Indication: CONTRACEPTION
     Dosage: 1 RING FOR 3 WEEKS FOLLOWED BY A WEEK FREE BREAK
     Route: 067
     Dates: start: 20121128
  2. IBUPROFEN [Concomitant]
     Dosage: 800 MG, UNK

REACTIONS (5)
  - Chest pain [Unknown]
  - Pain in extremity [Unknown]
  - Insomnia [Unknown]
  - Fatigue [Unknown]
  - Back pain [Unknown]
